FAERS Safety Report 4870966-4 (Version None)
Quarter: 2005Q4

REPORT INFORMATION
  Report Type: 
  Country: None (occurrence: None)
  Receive Date: 20051228
  Receipt Date: 20051208
  Transmission Date: 20060501
  Serious: Yes (Other)
  Sender: FDA-Public Use
  Company Number: USA0510111078

PATIENT
  Age: 70 Year
  Sex: Female

DRUGS (8)
  1. FORTEO [Suspect]
     Indication: OSTEOPOROSIS
     Dosage: DAILY (1/D)
     Dates: start: 20050401
  2. CALCIUM CITRATE (CALCIUM CITRATE) [Concomitant]
  3. LEXAPRO [Concomitant]
  4. VITAMIN B COMPLEX (BECOTIN) (VITAMIN B COMPLEX (BECOTIN)) [Concomitant]
  5. CALCIUM WITH VITAMIN D (CALCIUM PHOSPHATE, CALCIUM SODIUM LACTATE, ERG [Concomitant]
  6. ALENDRONATE SODIUM [Concomitant]
  7. ASA (ASPIRIN (ACETYLSALICYLIC ACID) CAPSULE [Concomitant]
  8. OCUVITE (ASCORBIC ACID, RETINOL, TOCOPHEROL [Concomitant]

REACTIONS (8)
  - ABDOMINAL PAIN [None]
  - ANXIETY [None]
  - BLOOD CALCIUM INCREASED [None]
  - DEPRESSION [None]
  - FATIGUE [None]
  - HAEMANGIOMA OF LIVER [None]
  - HEPATIC CYST [None]
  - INJECTION SITE PAIN [None]
